FAERS Safety Report 7041955-9 (Version None)
Quarter: 2010Q4

REPORT INFORMATION
  Report Type: 
  Country: None (occurrence: None)
  Receive Date: 20101013
  Receipt Date: 20100222
  Transmission Date: 20110411
  Serious: No
  Sender: FDA-Public Use
  Company Number: US-ASTRAZENECA-2010SE07616

PATIENT
  Age: 81 Year
  Sex: Female
  Weight: 50.8 kg

DRUGS (9)
  1. SYMBICORT [Suspect]
     Indication: CHRONIC OBSTRUCTIVE PULMONARY DISEASE
     Dosage: 160/4.5 UG 2 PUFFS TWO TIMES A DAY
     Route: 055
     Dates: start: 20090101, end: 20100105
  2. SYMBICORT [Suspect]
     Dosage: 80/4.5 UG 2 PUFFS TWO TIMES A DAY
     Route: 055
     Dates: start: 20100105
  3. SPIRIVA [Concomitant]
     Indication: CHRONIC OBSTRUCTIVE PULMONARY DISEASE
  4. LISINOPRIL [Concomitant]
     Indication: HYPERTENSION
  5. VITAMIN E [Concomitant]
  6. ASCORBIC ACID [Concomitant]
  7. VITAMIN D [Concomitant]
  8. ZINC [Concomitant]
  9. COPPER [Concomitant]

REACTIONS (4)
  - DRY MOUTH [None]
  - DRY THROAT [None]
  - DYSPHONIA [None]
  - OEDEMA PERIPHERAL [None]
